FAERS Safety Report 7063416-3 (Version None)
Quarter: 2010Q4

REPORT INFORMATION
  Report Type: 
  Country: None (occurrence: None)
  Receive Date: 20101026
  Receipt Date: 20101013
  Transmission Date: 20110411
  Serious: Yes (Hospitalization)
  Sender: FDA-Public Use
  Company Number: JP-GENENTECH-308508

PATIENT
  Sex: Female

DRUGS (3)
  1. RANIBIZUMAB [Suspect]
     Indication: DIABETIC RETINAL OEDEMA
     Dosage: UNK
     Route: 031
     Dates: start: 20100629, end: 20100824
  2. AMARYL [Concomitant]
     Indication: PRODUCT USED FOR UNKNOWN INDICATION
  3. ATARAX [Concomitant]
     Indication: PRODUCT USED FOR UNKNOWN INDICATION

REACTIONS (6)
  - BILE DUCT CANCER [None]
  - BILE DUCT STENOSIS [None]
  - BILIARY DRAINAGE [None]
  - DECREASED APPETITE [None]
  - JAUNDICE CHOLESTATIC [None]
  - MALAISE [None]
